FAERS Safety Report 23512428 (Version 1)
Quarter: 2024Q1

REPORT INFORMATION
  Report Type: Report from Study
  Country: US (occurrence: US)
  Receive Date: 20240212
  Receipt Date: 20240212
  Transmission Date: 20240409
  Serious: Yes (Hospitalization)
  Sender: FDA-Public Use
  Company Number: US-JNJFOC-20240215683

PATIENT
  Age: 44 Year
  Sex: Female
  Weight: 76.8 kg

DRUGS (4)
  1. EPOPROSTENOL SODIUM [Suspect]
     Active Substance: EPOPROSTENOL SODIUM
     Indication: Pulmonary hypertension
     Route: 042
  2. AMBRISENTAN [Concomitant]
     Active Substance: AMBRISENTAN
  3. TADALAFIL [Concomitant]
     Active Substance: TADALAFIL
  4. EPOPROSTENOL SUN [Concomitant]

REACTIONS (3)
  - Device occlusion [Unknown]
  - Device alarm issue [Unknown]
  - Underdose [Unknown]

NARRATIVE: CASE EVENT DATE: 20240110
